FAERS Safety Report 9463684 (Version 2)
Quarter: 2013Q3

REPORT INFORMATION
  Report Type: Report from Study
  Country: NL (occurrence: NL)
  Receive Date: 20130819
  Receipt Date: 20130819
  Transmission Date: 20140515
  Serious: Yes (Death, Other)
  Sender: FDA-Public Use
  Company Number: PHHY2013NL052419

PATIENT
  Sex: Male

DRUGS (5)
  1. ZOMETA [Suspect]
     Indication: PROSTATE CANCER METASTATIC
     Dosage: 4MG/100ML; ONCE EVERY 12 WEEKS
     Route: 041
  2. ZOMETA [Suspect]
     Dosage: 4MG/100ML; ONCE EVERY 12 WEEKS
     Route: 041
     Dates: start: 20100323
  3. ZOMETA [Suspect]
     Dosage: 4MG/100ML; ONCE EVERY 12 WEEKS
     Route: 041
     Dates: start: 20130228
  4. ZOMETA [Suspect]
     Dosage: 4MG/100ML; ONCE EVERY 12 WEEKS
     Route: 041
     Dates: start: 20130523
  5. CHEMOTHERAPEUTICS [Concomitant]
     Indication: PROSTATIC SPECIFIC ANTIGEN INCREASED
     Dosage: UNK UKN, UNK

REACTIONS (6)
  - Bone pain [Fatal]
  - Prostate cancer metastatic [Fatal]
  - Malignant neoplasm progression [Fatal]
  - Metastases to lung [Fatal]
  - Metastases to bone [Unknown]
  - Pain [Recovering/Resolving]
